FAERS Safety Report 21536264 (Version 3)
Quarter: 2023Q1

REPORT INFORMATION
  Report Type: Spontaneous
  Country: BR (occurrence: BR)
  Receive Date: 20221101
  Receipt Date: 20230104
  Transmission Date: 20230417
  Serious: Yes (Other)
  Sender: FDA-Public Use
  Company Number: BR-PFIZER INC-PV202200046658

PATIENT
  Age: 54 Year
  Sex: Male

DRUGS (1)
  1. INFLIXIMAB [Suspect]
     Active Substance: INFLIXIMAB
     Dosage: EVERY 8 WEEKS
     Dates: start: 2022

REACTIONS (4)
  - Parkinson^s disease [Not Recovered/Not Resolved]
  - Skin lesion [Unknown]
  - Pruritus [Unknown]
  - Skin abrasion [Unknown]
